FAERS Safety Report 16277814 (Version 1)
Quarter: 2019Q2

REPORT INFORMATION
  Report Type: Spontaneous
  Country: US (occurrence: US)
  Receive Date: 20190506
  Receipt Date: 20190506
  Transmission Date: 20190711
  Serious: No
  Sender: FDA-Public Use
  Company Number: US-B.I. PHARMACEUTICALS,INC./RIDGEFIELD-2019-BI-019987

PATIENT
  Age: 72 Year
  Sex: Female

DRUGS (4)
  1. SYNJARDY XR [Suspect]
     Active Substance: EMPAGLIFLOZIN\METFORMIN HYDROCHLORIDE
     Indication: TYPE 2 DIABETES MELLITUS
     Dosage: FORM STRENGTH: 25 MG/1000 MG; FORM: TABLET; ADMINISTRATION CORRECT? YES; ACTION: DRUG WITHDRAWN
     Route: 048
     Dates: start: 20190409, end: 20190429
  2. ELIQUIS [Concomitant]
     Active Substance: APIXABAN
     Indication: ATRIAL FIBRILLATION
     Dosage: TWICE A DAY; FORM STRENGTH: 5 MG; FORMULATION: TABLET
     Route: 048
     Dates: start: 201902
  3. SOTALOL. [Concomitant]
     Active Substance: SOTALOL
     Indication: ATRIAL FIBRILLATION
  4. SOTALOL. [Concomitant]
     Active Substance: SOTALOL
     Indication: HYPERTENSION
     Dosage: ONE TABLET TWICE A DAY; FORM STRENGTH: 40 MG; FORMULATION: TABLET
     Route: 048

REACTIONS (2)
  - Somnolence [Not Recovered/Not Resolved]
  - Pain in extremity [Not Recovered/Not Resolved]

NARRATIVE: CASE EVENT DATE: 20190423
